FAERS Safety Report 6462435-5 (Version None)
Quarter: 2009Q4

REPORT INFORMATION
  Report Type: 
  Country: None (occurrence: None)
  Receive Date: 20091130
  Receipt Date: 20091130
  Transmission Date: 20100525
  Serious: Yes (Other)
  Sender: FDA-Public Use
  Company Number: US-PFIZER INC-2009257533

PATIENT
  Sex: Female
  Weight: 102 kg

DRUGS (5)
  1. LIPITOR [Suspect]
     Indication: BLOOD CHOLESTEROL INCREASED
     Dosage: FREQUENCY: 1X/DAY, EVERY DAY;
     Route: 048
  2. NORVASC [Suspect]
     Indication: HYPERTENSION
     Dosage: FREQUENCY: 1X/DAY, EVERY DAY;
     Route: 048
     Dates: end: 20090701
  3. CADUET [Suspect]
     Indication: BLOOD CHOLESTEROL INCREASED
     Dosage: 10/20MG TABLET, ONCE DAILY
     Route: 048
     Dates: start: 20080101, end: 20080101
  4. CADUET [Suspect]
     Indication: HYPERTENSION
  5. ATENOLOL [Concomitant]
     Dosage: UNK

REACTIONS (5)
  - DIABETES MELLITUS [None]
  - GOUT [None]
  - MUSCULOSKELETAL DISORDER [None]
  - MUSCULOSKELETAL STIFFNESS [None]
  - SENSATION OF HEAVINESS [None]
